FAERS Safety Report 4481009-9 (Version None)
Quarter: 2004Q4

REPORT INFORMATION
  Report Type: 
  Country: None (occurrence: None)
  Receive Date: 20041020
  Receipt Date: 20041005
  Transmission Date: 20050328
  Serious: No
  Sender: FDA-Public Use
  Company Number: 2004AC00442

PATIENT
  Age: 64 Year
  Sex: Female

DRUGS (5)
  1. CRESTOR [Suspect]
     Indication: HYPERCHOLESTEROLAEMIA
     Dosage: 10 MG DAILY PO
     Route: 048
     Dates: start: 20040401, end: 20041004
  2. VIOXX [Concomitant]
  3. IBUPROFEN [Concomitant]
  4. FLUTICASONE PROPIONATE [Concomitant]
  5. LIPITOR [Concomitant]

REACTIONS (2)
  - CONDITION AGGRAVATED [None]
  - UTERINE LEIOMYOMA [None]
